FAERS Safety Report 18517475 (Version 1)
Quarter: 2020Q4

REPORT INFORMATION
  Report Type: Spontaneous
  Country: CN (occurrence: CN)
  Receive Date: 20201118
  Receipt Date: 20201118
  Transmission Date: 20210114
  Serious: Yes (Other)
  Sender: FDA-Public Use
  Company Number: CN-PFIZER INC-2020451549

PATIENT
  Age: 13 Year
  Sex: Male
  Weight: 40 kg

DRUGS (4)
  1. MEDROL [Suspect]
     Active Substance: METHYLPREDNISOLONE
     Indication: NEPHROTIC SYNDROME
     Dosage: 10 MG, TWICE DAILY
     Route: 048
     Dates: start: 20080824
  2. MEDROL [Suspect]
     Active Substance: METHYLPREDNISOLONE
     Dosage: 16 MG, TWICE DAILY
     Route: 048
  3. MEDROL [Suspect]
     Active Substance: METHYLPREDNISOLONE
     Dosage: UNK
     Route: 048
     Dates: end: 20201026
  4. MEDROL [Suspect]
     Active Substance: METHYLPREDNISOLONE
     Dosage: 4 MG, ALTERNATE DAY
     Route: 048

REACTIONS (3)
  - Spinal compression fracture [Unknown]
  - Spinal cord oedema [Unknown]
  - Growth retardation [Unknown]

NARRATIVE: CASE EVENT DATE: 20200511
